FAERS Safety Report 4735659-2 (Version None)
Quarter: 2005Q3

REPORT INFORMATION
  Report Type: 
  Country: None (occurrence: None)
  Receive Date: 20050805
  Receipt Date: 20050801
  Transmission Date: 20060218
  Serious: Yes (Disabling)
  Sender: FDA-Public Use
  Company Number: 2005GB01479

PATIENT
  Age: 62 Year
  Sex: Female

DRUGS (6)
  1. CRESTOR [Suspect]
     Indication: BLOOD CHOLESTEROL INCREASED
     Route: 048
     Dates: end: 20050519
  2. ATENOLOL [Concomitant]
     Route: 048
  3. ADIPINE MR [Concomitant]
     Route: 048
  4. ASPIRIN [Concomitant]
     Route: 048
  5. BENDROFLUMETHIAZIDE [Concomitant]
     Route: 048
  6. ACETAMINOPHEN W/ CODEINE [Concomitant]

REACTIONS (1)
  - LICHEN PLANUS [None]
